FAERS Safety Report 8943524 (Version 1)
Quarter: 2012Q4

REPORT INFORMATION
  Report Type: 
  Country: US (occurrence: US)
  Receive Date: 20121204
  Receipt Date: 20121204
  Transmission Date: 20130627
  Serious: No
  Sender: FDA-Public Use
  Company Number: US-PFIZER INC-2012301972

PATIENT
  Age: 87 Year
  Sex: Female
  Weight: 48 kg

DRUGS (2)
  1. ADVIL [Suspect]
     Indication: BACK PAIN
     Dosage: 200 mg, every 4 or 5 hours
     Dates: start: 201211
  2. RECLAST [Suspect]
     Dosage: UNK
     Dates: start: 20121123

REACTIONS (1)
  - Constipation [Not Recovered/Not Resolved]
